FAERS Safety Report 11659255 (Version 1)
Quarter: 2015Q4

REPORT INFORMATION
  Report Type: Spontaneous
  Country: CA (occurrence: CA)
  Receive Date: 20151026
  Receipt Date: 20151026
  Transmission Date: 20160304
  Serious: Yes (Congenital Anomaly)
  Sender: FDA-Public Use
  Company Number: CA-TEVA-601971ACC

PATIENT
  Sex: Male
  Weight: 2 kg

DRUGS (6)
  1. CLONAZEPAM. [Suspect]
     Active Substance: CLONAZEPAM
     Indication: EXPOSURE DURING PREGNANCY
     Dosage: .5 MILLIGRAM DAILY;
     Route: 064
  2. CYMBALTA [Suspect]
     Active Substance: DULOXETINE HYDROCHLORIDE
     Indication: EXPOSURE DURING PREGNANCY
     Dosage: 120 MILLIGRAM DAILY;
     Route: 064
  3. TRAMADOL HYDROCHLORIDE. [Suspect]
     Active Substance: TRAMADOL HYDROCHLORIDE
     Indication: EXPOSURE DURING PREGNANCY
     Route: 048
  4. AMITRIPTYLINE [Suspect]
     Active Substance: AMITRIPTYLINE
     Indication: EXPOSURE DURING PREGNANCY
     Dosage: 20 MILLIGRAM DAILY;
     Route: 064
  5. QUETIAPINE [Suspect]
     Active Substance: QUETIAPINE
     Indication: EXPOSURE DURING PREGNANCY
     Dosage: 200 MILLIGRAM DAILY;
     Route: 064
  6. BUPROPION. [Suspect]
     Active Substance: BUPROPION
     Indication: EXPOSURE DURING PREGNANCY
     Dosage: 300 MILLIGRAM DAILY;
     Route: 064

REACTIONS (3)
  - Transposition of the great vessels [Recovering/Resolving]
  - Pulmonary valve disease [Recovering/Resolving]
  - Ventricular hypoplasia [Recovering/Resolving]
